FAERS Safety Report 21410745 (Version 1)
Quarter: 2022Q4

REPORT INFORMATION
  Report Type: Spontaneous
  Country: US (occurrence: None)
  Receive Date: 20221004
  Receipt Date: 20221004
  Transmission Date: 20230113
  Serious: Yes (Hospitalization)
  Sender: FDA-Public Use
  Company Number: None

PATIENT
  Age: 63 Year
  Sex: Male
  Weight: 112 kg

DRUGS (3)
  1. BOSULIF [Suspect]
     Active Substance: BOSUTINIB MONOHYDRATE
     Indication: Philadelphia positive acute lymphocytic leukaemia
     Dosage: 500 MG DAILY ORAL
     Route: 048
     Dates: start: 20220607, end: 20220621
  2. Inotuzumab ozogamicin (Besponsa) [Concomitant]
  3. ALLOPURINOL [Concomitant]
     Active Substance: ALLOPURINOL

REACTIONS (8)
  - Dyspnoea [None]
  - Pleural effusion [None]
  - Hypoxia [None]
  - Stem cell transplant [None]
  - Lung opacity [None]
  - Lymphadenopathy mediastinal [None]
  - Respiratory symptom [None]
  - Therapy interrupted [None]

NARRATIVE: CASE EVENT DATE: 20220621
